FAERS Safety Report 10445076 (Version 2)
Quarter: 2014Q4

REPORT INFORMATION
  Report Type: Spontaneous
  Country: JP (occurrence: JP)
  Receive Date: 20140910
  Receipt Date: 20141203
  Transmission Date: 20150528
  Serious: Yes (Hospitalization)
  Sender: FDA-Public Use
  Company Number: JP-SA-2014SA120945

PATIENT
  Age: 12 Year
  Sex: Male

DRUGS (4)
  1. CYCLOPHOSPHAMIDE. [Concomitant]
     Active Substance: CYCLOPHOSPHAMIDE
  2. FUROSEMIDE. [Suspect]
     Active Substance: FUROSEMIDE
     Indication: NEPHROTIC SYNDROME
     Route: 065
  3. MIZORIBINE [Concomitant]
     Active Substance: MIZORIBINE
  4. CICLOSPORIN [Concomitant]
     Active Substance: CYCLOSPORINE

REACTIONS (4)
  - Condition aggravated [Recovering/Resolving]
  - Hyponatraemia [Recovered/Resolved]
  - Hypoalbuminaemia [Unknown]
  - Dehydration [Recovering/Resolving]
